FAERS Safety Report 15430536 (Version 2)
Quarter: 2019Q1

REPORT INFORMATION
  Report Type: Report from Study
  Country: CA (occurrence: CA)
  Receive Date: 20180926
  Receipt Date: 20190122
  Transmission Date: 20190417
  Serious: Yes (Death, Hospitalization)
  Sender: FDA-Public Use
  Company Number: CA-PFIZER INC-2018385886

PATIENT
  Age: 28 Year
  Sex: Male

DRUGS (3)
  1. TYLENOL REGULAR STRENGTH [Suspect]
     Active Substance: ACETAMINOPHEN
     Dosage: UNK
     Route: 065
     Dates: start: 2003
  2. ALCOHOL. [Suspect]
     Active Substance: ALCOHOL
     Dosage: UNK
     Route: 065
  3. ADVIL [Suspect]
     Active Substance: IBUPROFEN
     Dosage: UNK
     Route: 065

REACTIONS (6)
  - Encephalopathy [Fatal]
  - Acute respiratory distress syndrome [Fatal]
  - Metabolic acidosis [Fatal]
  - Depression [Fatal]
  - Acute hepatic failure [Fatal]
  - Hepatorenal syndrome [Fatal]
